FAERS Safety Report 22283339 (Version 1)
Quarter: 2023Q2

REPORT INFORMATION
  Report Type: Report from Study
  Country: NL (occurrence: NL)
  Receive Date: 20230504
  Receipt Date: 20230504
  Transmission Date: 20230721
  Serious: Yes (Hospitalization)
  Sender: FDA-Public Use
  Company Number: NL-JNJFOC-20220911147

PATIENT
  Age: 65 Year
  Sex: Female
  Weight: 89.5 kg

DRUGS (3)
  1. TECLISTAMAB [Suspect]
     Active Substance: TECLISTAMAB
     Indication: Plasma cell myeloma
     Dosage: MOST RECENT DOSE PRIOR TO THE EVENTS ADMINISTERED ON 27-JUL-2022
     Route: 058
     Dates: start: 20220209
  2. DARATUMUMAB [Suspect]
     Active Substance: DARATUMUMAB
     Indication: Plasma cell myeloma
     Dosage: MOST RECENT DOSE ADMINISTERED PRIOR TO THE EVENTS ON 10-AUG-2022
     Route: 058
     Dates: start: 20220208
  3. FUROSEMIDE [Concomitant]
     Active Substance: FUROSEMIDE
     Dates: start: 20220904, end: 20220904

REACTIONS (3)
  - Pyrexia [Recovered/Resolved]
  - Renal impairment [Recovered/Resolved]
  - Breast abscess [Recovered/Resolved]

NARRATIVE: CASE EVENT DATE: 20220905
